FAERS Safety Report 20710157 (Version 2)
Quarter: 2022Q2

REPORT INFORMATION
  Report Type: Spontaneous
  Country: US (occurrence: US)
  Receive Date: 20220414
  Receipt Date: 20220512
  Transmission Date: 20220721
  Serious: Yes (Hospitalization, Other)
  Sender: FDA-Public Use
  Company Number: US-BAYER-2022A050796

PATIENT
  Sex: Female

DRUGS (7)
  1. ADEMPAS [Suspect]
     Active Substance: RIOCIGUAT
     Indication: Product used for unknown indication
     Dosage: UNK
  2. AMBRISENTAN [Suspect]
     Active Substance: AMBRISENTAN
     Indication: Pulmonary hypertension
     Dosage: 10 MG, QD
     Route: 048
     Dates: start: 20200422
  3. XARELTO [Concomitant]
     Active Substance: RIVAROXABAN
  4. UPTRAVI [Concomitant]
     Active Substance: SELEXIPAG
  5. REMODULIN [Concomitant]
     Active Substance: TREPROSTINIL
  6. TYVASO [Concomitant]
     Active Substance: TREPROSTINIL
  7. ADCIRCA [Concomitant]
     Active Substance: TADALAFIL

REACTIONS (9)
  - Head injury [None]
  - Seizure [None]
  - Accident [None]
  - Fluid retention [None]
  - Loss of consciousness [None]
  - Dyspnoea [None]
  - Catheter site erythema [None]
  - Diarrhoea [None]
  - Headache [None]
